FAERS Safety Report 5960507-2 (Version None)
Quarter: 2008Q4

REPORT INFORMATION
  Report Type: 
  Country: None (occurrence: None)
  Receive Date: 20081120
  Receipt Date: 20071210
  Transmission Date: 20090506
  Serious: No
  Sender: FDA-Public Use
  Company Number: US-ABBOTT-07P-163-0430090-00

PATIENT
  Sex: Female
  Weight: 74.91 kg

DRUGS (1)
  1. BIAXIN [Suspect]
     Indication: INFECTION
     Route: 048

REACTIONS (3)
  - DIZZINESS [None]
  - DYSGEUSIA [None]
  - NAUSEA [None]
